FAERS Safety Report 5468892-5 (Version None)
Quarter: 2007Q3

REPORT INFORMATION
  Report Type: 
  Country: None (occurrence: None)
  Receive Date: 20070926
  Receipt Date: 20070913
  Transmission Date: 20080115
  Serious: Yes (Hospitalization, Other)
  Sender: FDA-Public Use
  Company Number: CA-SHR-CA-2005-002422

PATIENT
  Age: 45 Year
  Sex: Male

DRUGS (15)
  1. BETASERON [Suspect]
     Indication: RELAPSING-REMITTING MULTIPLE SCLEROSIS
     Dosage: 8 MIU, EVERY 2D
     Route: 058
     Dates: start: 20030311, end: 20070830
  2. EFFEXOR [Concomitant]
     Dosage: 150 MG, 1X/DAY
     Route: 048
  3. VIAGRA [Concomitant]
  4. BUPROPION HCL [Concomitant]
     Dosage: 150 MG, 1X/DAY
     Route: 048
  5. BACLOFEN [Concomitant]
     Dosage: 20 MG, 2X/DAY
     Route: 048
  6. COLACE [Concomitant]
     Dosage: 200 MG, 2X/DAY
     Route: 048
  7. SENOKOT [Concomitant]
     Dosage: 1 TAB(S), 2X/DAY
     Route: 048
  8. LACTULOSE [Concomitant]
     Dosage: 30 MG, 3X/DAY
     Route: 048
  9. DILAUDID [Concomitant]
     Indication: PAIN
     Dosage: 15 MG, 2X/DAY
     Route: 048
  10. DILAUDID [Concomitant]
     Dosage: 2 MG, AS REQ'D
  11. ATIVAN [Concomitant]
     Dosage: 1 MG, AS REQ'D
  12. NAPROSYN [Concomitant]
     Dosage: 375 MG, 2X/DAY
     Route: 048
  13. VITAMIN D [Concomitant]
     Dosage: 1000 IU, UNK
  14. OMEGA 3-6-9 [Concomitant]
  15. PREDNISONE [Concomitant]
     Dosage: 5 MG, UNK

REACTIONS (3)
  - BALANCE DISORDER [None]
  - MULTIPLE SCLEROSIS [None]
  - PROSTATE CANCER METASTATIC [None]
